FAERS Safety Report 5572026-6 (Version None)
Quarter: 2007Q4

REPORT INFORMATION
  Report Type: 
  Country: None (occurrence: None)
  Receive Date: 20071219
  Receipt Date: 20071210
  Transmission Date: 20080405
  Serious: Yes (Hospitalization)
  Sender: FDA-Public Use
  Company Number: 2007BI026183

PATIENT
  Age: 66 Year
  Sex: Female

DRUGS (1)
  1. AVONEX [Suspect]
     Indication: MULTIPLE SCLEROSIS
     Dosage: 30 UG; QW; IM
     Route: 030
     Dates: start: 19960101

REACTIONS (9)
  - ASTHENIA [None]
  - COLITIS [None]
  - DIZZINESS [None]
  - FALL [None]
  - HIP FRACTURE [None]
  - LARGE INTESTINAL HAEMORRHAGE [None]
  - NERVOUSNESS [None]
  - PAIN IN EXTREMITY [None]
  - ULCER [None]
